FAERS Safety Report 12845517 (Version 1)
Quarter: 2016Q4

REPORT INFORMATION
  Report Type: Spontaneous
  Country: US (occurrence: US)
  Receive Date: 20161013
  Receipt Date: 20161013
  Transmission Date: 20170207
  Serious: No
  Sender: FDA-Public Use
  Company Number: US-JAZZ-2016-US-013845

PATIENT
  Sex: Female

DRUGS (16)
  1. XYREM [Suspect]
     Active Substance: SODIUM OXYBATE
     Indication: SLEEP DISORDER
     Dosage: 3 G, BID
     Route: 048
     Dates: start: 2008, end: 200806
  2. XYREM [Suspect]
     Active Substance: SODIUM OXYBATE
     Dosage: 6 G, BID
     Route: 048
     Dates: start: 201501
  3. VITAMIN B6 [Concomitant]
     Active Substance: PYRIDOXINE HYDROCHLORIDE
  4. LEVOTHYROXINE. [Concomitant]
     Active Substance: LEVOTHYROXINE
  5. FENTANYL. [Concomitant]
     Active Substance: FENTANYL
  6. CYANOCOBALAMINE [Concomitant]
     Active Substance: CYANOCOBALAMIN
  7. XANAX [Concomitant]
     Active Substance: ALPRAZOLAM
  8. ZALEPLON. [Concomitant]
     Active Substance: ZALEPLON
  9. DOXEPIN [Concomitant]
     Active Substance: DOXEPIN
  10. SOMATORELIN. [Concomitant]
     Active Substance: SOMATORELIN
  11. WELLBUTRIN [Concomitant]
     Active Substance: BUPROPION HYDROCHLORIDE
  12. XYREM [Suspect]
     Active Substance: SODIUM OXYBATE
     Dosage: DOSE ADJUSTMENTS
     Route: 048
     Dates: start: 200806, end: 201501
  13. MORPHINE SULFATE. [Concomitant]
     Active Substance: MORPHINE SULFATE
  14. ZOLPIDEM TARTRATE. [Concomitant]
     Active Substance: ZOLPIDEM TARTRATE
  15. CORTISOL [Concomitant]
     Active Substance: HYDROCORTISONE
  16. DHEA [Concomitant]
     Active Substance: PRASTERONE

REACTIONS (4)
  - Hypothyroidism [Unknown]
  - Hypertension [Unknown]
  - Tachycardia [Unknown]
  - Arthralgia [Unknown]
